FAERS Safety Report 9124694 (Version 3)
Quarter: 2013Q2

REPORT INFORMATION
  Report Type: Spontaneous
  Country: JP (occurrence: JP)
  Receive Date: 20130227
  Receipt Date: 20130509
  Transmission Date: 20140414
  Serious: Yes (Other)
  Sender: FDA-Public Use
  Company Number: JP-ELI_LILLY_AND_COMPANY-JP201302006523

PATIENT
  Age: 86 Year
  Sex: Female
  Weight: 40 kg

DRUGS (13)
  1. FORTEO [Suspect]
     Indication: OSTEOPOROSIS
     Dosage: 20 UG, EACH EVENING
     Route: 058
     Dates: start: 20130116, end: 20130219
  2. FORTEO [Suspect]
     Dosage: 20 UG, EACH EVENING
     Route: 058
     Dates: start: 20130327, end: 20130424
  3. BAYASPIRIN [Concomitant]
     Indication: ANGINA PECTORIS
     Dosage: 100 MG, QD
     Route: 048
     Dates: start: 20070130
  4. EXFORGE [Concomitant]
     Indication: HYPERTENSION
     Dosage: UNK UNK, QD
     Route: 048
     Dates: start: 20070130
  5. SPIRONOLACTONE [Concomitant]
     Indication: CARDIAC FAILURE CONGESTIVE
     Dosage: 25 MG, QD
     Route: 048
     Dates: start: 20120720, end: 20130219
  6. SPIRONOLACTONE [Concomitant]
     Dosage: 25 MG, QD
     Dates: start: 20130327
  7. DIART [Concomitant]
     Indication: CARDIAC FAILURE CONGESTIVE
     Dosage: 30 MG, QD
     Route: 048
     Dates: start: 20121126
  8. NICORANDIL [Concomitant]
     Indication: ANGINA PECTORIS
     Dosage: 5 MG, TID
     Route: 048
     Dates: start: 20070130
  9. LIMAPROST ALFADEX [Concomitant]
     Indication: LUMBAR SPINAL STENOSIS
     Dosage: 5 UG, TID
     Route: 048
     Dates: start: 20090330
  10. VASOLATOR [Concomitant]
     Indication: ANGINA PECTORIS
     Dosage: 27 MG, QD
     Route: 062
     Dates: start: 20070130
  11. LOXONIN [Concomitant]
     Indication: ARTHRALGIA
     Dosage: 100 MG, QD
     Route: 007
     Dates: start: 20120827
  12. IMIDAFENACIN [Concomitant]
     Indication: NOCTURIA
     Dosage: 0.1 MG, QD
     Route: 048
     Dates: start: 20120926
  13. VITAMINE D VOOR SENIOREN [Concomitant]
     Indication: OSTEOPOROSIS
     Dosage: 0.5 UG, QD
     Route: 048
     Dates: start: 20121126

REACTIONS (2)
  - Renal impairment [Recovering/Resolving]
  - Renal impairment [Unknown]
